FAERS Safety Report 4407240-6 (Version None)
Quarter: 2004Q3

REPORT INFORMATION
  Report Type: 
  Country: None (occurrence: None)
  Receive Date: 20040721
  Receipt Date: 20040708
  Transmission Date: 20050211
  Serious: Yes (Hospitalization, Other)
  Sender: FDA-Public Use
  Company Number: 2004046176

PATIENT
  Age: 69 Year
  Sex: Female
  Weight: 79.8331 kg

DRUGS (12)
  1. LIPITOR [Suspect]
     Indication: BLOOD CHOLESTEROL INCREASED
     Dosage: 10 MG (10 MG 1 IN 1 D) ORAL
     Route: 048
  2. CELECOXIB (CELECOXIB) [Suspect]
     Indication: RHEUMATOID ARTHRITIS
     Dosage: 200 MG (200 MG 1 IN 1 D) ORAL
     Route: 048
  3. ALPRAZOLAM [Suspect]
     Indication: ANXIETY
     Dosage: 15 MG (5 MG, 3 IN 1 D)
  4. TOLTERODINE TARTRATE [Suspect]
     Indication: URINARY INCONTINENCE
     Dosage: 2 MG (2 MG 1 IN 1 D)
  5. FLUTICASONE PROPIONATE [Suspect]
     Indication: HYPERSENSITIVITY
  6. ZYRTEC-D 12 HOUR [Suspect]
     Indication: HYPERSENSITIVITY
     Dosage: 40 MG (20 MG 2 IN 1 D)
  7. RAMIPRIL [Concomitant]
  8. MECLONZINE (MECLONZINE) [Concomitant]
  9. PROPACET (DEXTROPROPOXYPHENE NAPSILATE, PARACETAMOL) [Concomitant]
  10. ZOLPIDEM TARTRATE [Concomitant]
  11. ASPIRIN [Concomitant]
  12. PIOGLITAZONE HCL [Concomitant]

REACTIONS (8)
  - ANXIETY [None]
  - BLOOD GLUCOSE INCREASED [None]
  - CARDIAC FAILURE CONGESTIVE [None]
  - CONDITION AGGRAVATED [None]
  - DYSPNOEA [None]
  - MULTIPLE ALLERGIES [None]
  - TREATMENT NONCOMPLIANCE [None]
  - URINARY INCONTINENCE [None]
